FAERS Safety Report 12694584 (Version 1)
Quarter: 2016Q3

REPORT INFORMATION
  Report Type: Spontaneous
  Country: DK (occurrence: DK)
  Receive Date: 20160829
  Receipt Date: 20160829
  Transmission Date: 20161109
  Serious: Yes (Other)
  Sender: FDA-Public Use
  Company Number: PHHY2016DK115359

PATIENT
  Age: 32 Year
  Sex: Female

DRUGS (2)
  1. METRONIDAZOLE. [Concomitant]
     Active Substance: METRONIDAZOLE
     Indication: JOINT SWELLING
     Route: 065
  2. BIOCLAVID [Suspect]
     Active Substance: AMOXICILLIN\CLAVULANIC ACID
     Indication: JOINT SWELLING
     Dosage: 1 DF TID STRENGTH: 500+125 MG.
     Route: 048
     Dates: start: 20160516

REACTIONS (3)
  - Rash macular [Recovered/Resolved]
  - Paraesthesia [Recovered/Resolved]
  - Rash pruritic [Recovered/Resolved]

NARRATIVE: CASE EVENT DATE: 20160524
